FAERS Safety Report 12852186 (Version 1)
Quarter: 2016Q4

REPORT INFORMATION
  Report Type: Spontaneous
  Country: US (occurrence: US)
  Receive Date: 20161014
  Receipt Date: 20161014
  Transmission Date: 20170207
  Serious: No
  Sender: FDA-Public Use
  Company Number: None

PATIENT
  Age: 6 Year
  Sex: Male
  Weight: 24.75 kg

DRUGS (5)
  1. XOPENEX [Concomitant]
     Active Substance: LEVALBUTEROL HYDROCHLORIDE
  2. FLOVENT [Concomitant]
     Active Substance: FLUTICASONE PROPIONATE
  3. NASONEX [Concomitant]
     Active Substance: MOMETASONE FUROATE
  4. MONTELUKAST [Suspect]
     Active Substance: MONTELUKAST SODIUM
     Indication: ASTHMA
     Route: 048
     Dates: start: 20120601, end: 20150929
  5. LEVIBUTEROL [Concomitant]

REACTIONS (11)
  - Enuresis [None]
  - Anger [None]
  - Decreased appetite [None]
  - Food craving [None]
  - Aggression [None]
  - Abnormal behaviour [None]
  - Anhedonia [None]
  - Sleep terror [None]
  - Onychophagia [None]
  - Depression [None]
  - Infection [None]

NARRATIVE: CASE EVENT DATE: 20150601
